FAERS Safety Report 8244906-4 (Version None)
Quarter: 2012Q1

REPORT INFORMATION
  Report Type: 
  Country: None (occurrence: None)
  Receive Date: 20120329
  Receipt Date: 20110901
  Transmission Date: 20120608
  Serious: No
  Sender: FDA-Public Use
  Company Number: US-MYLANLABS-2011S1018240

PATIENT
  Age: 51 Year
  Sex: Female
  Weight: 77.11 kg

DRUGS (7)
  1. SOMA [Concomitant]
     Indication: MUSCLE RELAXANT THERAPY
  2. KLONOPIN [Concomitant]
  3. FENTANYL-100 [Suspect]
     Indication: PAIN
     Dosage: Q72H
     Route: 062
  4. LEVOXYL [Concomitant]
  5. HYDROXYZINE [Concomitant]
  6. VITAMIN B-12 [Concomitant]
  7. VITAMIN D [Concomitant]

REACTIONS (2)
  - DIARRHOEA [None]
  - MYALGIA [None]
